FAERS Safety Report 22295118 (Version 2)
Quarter: 2023Q2

REPORT INFORMATION
  Report Type: Report from Study
  Country: CA (occurrence: CA)
  Receive Date: 20230508
  Receipt Date: 20230616
  Transmission Date: 20230722
  Serious: Yes (Hospitalization)
  Sender: FDA-Public Use
  Company Number: CA-TAKEDA-2023TUS032347

PATIENT
  Age: 66 Year
  Sex: Male

DRUGS (4)
  1. LANADELUMAB [Suspect]
     Active Substance: LANADELUMAB
     Indication: Hereditary angioedema with C1 esterase inhibitor deficiency
     Dosage: 2 DOSAGE FORM, Q2WEEKS
     Route: 050
     Dates: start: 20221229
  2. LANADELUMAB [Suspect]
     Active Substance: LANADELUMAB
     Dosage: UNK UNK, Q2WEEKS
     Route: 058
  3. HAEGARDA [Concomitant]
     Active Substance: HUMAN C1-ESTERASE INHIBITOR
     Dosage: UNK
     Dates: end: 202212
  4. FIRAZYR [Concomitant]
     Active Substance: ICATIBANT ACETATE

REACTIONS (4)
  - Bentall procedure [Recovered/Resolved]
  - Arthralgia [Recovering/Resolving]
  - Wound [Recovering/Resolving]
  - Product use in unapproved indication [Unknown]
